FAERS Safety Report 8575596-9 (Version None)
Quarter: 2012Q3

REPORT INFORMATION
  Report Type: 
  Country: None (occurrence: None)
  Receive Date: 20120807
  Receipt Date: 20120725
  Transmission Date: 20120928
  Serious: Yes (Death, Other)
  Sender: FDA-Public Use
  Company Number: US-ASTELLAS-2012US000767

PATIENT
  Sex: Male
  Weight: 48 kg

DRUGS (4)
  1. COUMADIN [Concomitant]
     Dosage: 2.5 MG, UID/QD
     Route: 048
  2. DECLOMYCIN [Concomitant]
     Indication: HYPOTENSION
     Dosage: 10 MG, TID
     Route: 048
     Dates: start: 20091201, end: 20100301
  3. TARCEVA [Suspect]
     Indication: LUNG NEOPLASM MALIGNANT
     Dosage: 150 MG, UID/QD
     Route: 048
     Dates: start: 20090309, end: 20100403
  4. COUMADIN [Concomitant]
     Indication: PRODUCT USED FOR UNKNOWN INDICATION
     Dosage: UNK
     Route: 048
     Dates: start: 20090209, end: 20100301

REACTIONS (6)
  - CHRONIC OBSTRUCTIVE PULMONARY DISEASE [None]
  - DERMATITIS ACNEIFORM [None]
  - WEIGHT DECREASED [None]
  - PROTHROMBIN TIME ABNORMAL [None]
  - PERIPHERAL ISCHAEMIA [None]
  - LUNG ADENOCARCINOMA [None]
